FAERS Safety Report 7528271-3 (Version None)
Quarter: 2011Q2

REPORT INFORMATION
  Report Type: 
  Country: None (occurrence: None)
  Receive Date: 20110607
  Receipt Date: 20101202
  Transmission Date: 20111010
  Serious: No
  Sender: FDA-Public Use
  Company Number: US-ASTRAZENECA-2010SE57343

PATIENT
  Sex: Male
  Weight: 76.2 kg

DRUGS (4)
  1. PRILOSEC [Suspect]
     Indication: GASTROOESOPHAGEAL REFLUX DISEASE
     Route: 048
     Dates: start: 20040101
  2. LISINOPRIL [Concomitant]
     Indication: HYPERTENSION
  3. LORTAB [Concomitant]
     Indication: PAIN
  4. KLONOPIN [Concomitant]

REACTIONS (3)
  - DRUG INEFFECTIVE [None]
  - GASTROOESOPHAGEAL REFLUX DISEASE [None]
  - INSOMNIA [None]
